FAERS Safety Report 6375156-4 (Version None)
Quarter: 2009Q3

REPORT INFORMATION
  Report Type: 
  Country: None (occurrence: None)
  Receive Date: 20090921
  Receipt Date: 20090909
  Transmission Date: 20100115
  Serious: Yes (Hospitalization)
  Sender: FDA-Public Use
  Company Number: 237580K09USA

PATIENT
  Age: 24 Year
  Sex: Female
  Weight: 70 kg

DRUGS (10)
  1. REBIF [Suspect]
     Indication: MULTIPLE SCLEROSIS
     Dosage: 44 MCG,3 IN 1 WEEKS, SUBCUTANEOUS
     Route: 058
     Dates: start: 20090116, end: 20090901
  2. REBIF [Suspect]
     Indication: MULTIPLE SCLEROSIS
     Dosage: 44 MCG,3 IN 1 WEEKS, SUBCUTANEOUS
     Route: 058
     Dates: start: 20090708
  3. MS CONTIN [Concomitant]
  4. VICODIN [Concomitant]
  5. TOPAMAX [Concomitant]
  6. BACLOFEN [Concomitant]
  7. NEURONTIN [Concomitant]
  8. TYLENOL [Concomitant]
  9. AMBIEN [Concomitant]
  10. XANAX [Concomitant]

REACTIONS (11)
  - DEPRESSION [None]
  - DYSKINESIA [None]
  - IMPAIRED GASTRIC EMPTYING [None]
  - INAPPROPRIATE SCHEDULE OF DRUG ADMINISTRATION [None]
  - INJECTION SITE ERYTHEMA [None]
  - INJECTION SITE PAIN [None]
  - MULTIPLE SCLEROSIS RELAPSE [None]
  - NUCLEAR MAGNETIC RESONANCE IMAGING BRAIN ABNORMAL [None]
  - OEDEMA PERIPHERAL [None]
  - PAIN [None]
  - PROGRESSIVE MULTIPLE SCLEROSIS [None]
